FAERS Safety Report 16780795 (Version 1)
Quarter: 2019Q3

REPORT INFORMATION
  Report Type: Spontaneous
  Country: ES (occurrence: ES)
  Receive Date: 20190906
  Receipt Date: 20190906
  Transmission Date: 20191005
  Serious: Yes (Hospitalization, Disabling, Other)
  Sender: FDA-Public Use
  Company Number: ES-MYLANLABS-2019M1083260

PATIENT
  Age: 56 Year
  Sex: Male

DRUGS (6)
  1. RISPERIDONE. [Suspect]
     Active Substance: RISPERIDONE
     Indication: AGITATION
     Dosage: 6 MG, QD
  2. CLONAZEPAM. [Concomitant]
     Active Substance: CLONAZEPAM
     Indication: MANIA
     Dosage: 2 MG, QD
  3. CLONAZEPAM. [Concomitant]
     Active Substance: CLONAZEPAM
     Dosage: 6 MG, QD
  4. LITHIUM. [Suspect]
     Active Substance: LITHIUM
     Indication: MANIA
     Dosage: 1200 MG, QD
  5. QUETIAPINE. [Concomitant]
     Active Substance: QUETIAPINE
     Indication: AGITATION
     Dosage: 1000 MG, QD
  6. QUETIAPINE. [Concomitant]
     Active Substance: QUETIAPINE
     Indication: MANIA
     Dosage: 600 MG, QD

REACTIONS (17)
  - Dementia [Recovered/Resolved]
  - Dysphagia [Unknown]
  - Status epilepticus [Unknown]
  - Hallucination, visual [Unknown]
  - Cognitive disorder [Recovered/Resolved]
  - Neurotoxicity [Recovered/Resolved]
  - Myoclonus [Unknown]
  - Disturbance in attention [Recovering/Resolving]
  - Pulmonary embolism [Unknown]
  - Psychomotor hyperactivity [Unknown]
  - Ataxia [Unknown]
  - Amnesia [Recovering/Resolving]
  - Disorientation [Recovered/Resolved]
  - Dysarthria [Unknown]
  - Encephalopathy [Recovered/Resolved]
  - Altered state of consciousness [Recovered/Resolved]
  - Anal incontinence [Unknown]
